FAERS Safety Report 9927544 (Version 2)
Quarter: 2014Q1

REPORT INFORMATION
  Report Type: Report from Study
  Country: JP (occurrence: JP)
  Receive Date: 20140227
  Receipt Date: 20140310
  Transmission Date: 20141002
  Serious: Yes (Death)
  Sender: FDA-Public Use
  Company Number: JP-PFIZER INC-2014052912

PATIENT
  Age: 77 Year
  Sex: Male
  Weight: 55.5 kg

DRUGS (7)
  1. XALKORI [Suspect]
     Indication: NON-SMALL CELL LUNG CANCER
     Dosage: 250 MG, 2X/DAY
     Route: 048
     Dates: start: 20121113, end: 20121212
  2. DECADRON [Concomitant]
     Dosage: 1.0 MG, 2X/DAY
     Route: 048
     Dates: end: 20130104
  3. BAYASPIRIN [Concomitant]
     Dosage: 100 MG, 1X/DAY
     Route: 048
     Dates: end: 20130104
  4. PLAVIX [Concomitant]
     Dosage: 75 MG, 1X/DAY
     Route: 048
     Dates: end: 20130104
  5. TAKEPRON [Concomitant]
     Dosage: 15 MG, 1X/DAY
     Route: 048
     Dates: end: 20130104
  6. ACTOS [Concomitant]
     Dosage: 15 MG, 1X/DAY
     Route: 048
     Dates: end: 20130104
  7. LIVALO [Concomitant]
     Dosage: 1 MG, 1X/DAY
     Route: 048
     Dates: end: 20130104

REACTIONS (2)
  - Disease progression [Fatal]
  - Non-small cell lung cancer [Fatal]
